FAERS Safety Report 10008608 (Version 1)
Quarter: 2014Q1

REPORT INFORMATION
  Report Type: Spontaneous
  Country: US (occurrence: US)
  Receive Date: 20140312
  Receipt Date: 20140312
  Transmission Date: 20141002
  Serious: No
  Sender: FDA-Public Use
  Company Number: US-INCYTE CORPORATION-2012IN000113

PATIENT
  Sex: Male

DRUGS (4)
  1. JAKAFI [Suspect]
     Indication: MYELOFIBROSIS
     Dosage: 20 MG, BID
     Route: 048
  2. MOTRIN [Concomitant]
     Indication: PAIN
  3. BABY ASPIRIN [Concomitant]
  4. ROPINIROLE [Concomitant]
     Dosage: UNK, PRN

REACTIONS (1)
  - Hypoaesthesia [Unknown]
